FAERS Safety Report 5846422-3 (Version None)
Quarter: 2008Q3

REPORT INFORMATION
  Report Type: 
  Country: None (occurrence: None)
  Receive Date: 20080815
  Receipt Date: 20080802
  Transmission Date: 20090109
  Serious: Yes (Other)
  Sender: FDA-Public Use
  Company Number: US-BAYER-200823888GPV

PATIENT
  Age: 47 Year
  Sex: Female

DRUGS (1)
  1. FLUDARABINE PHOSPHATE [Suspect]
     Indication: ACUTE MYELOID LEUKAEMIA
     Route: 065

REACTIONS (5)
  - BLINDNESS CORTICAL [None]
  - ENCEPHALOPATHY [None]
  - PARAPARESIS [None]
  - QUADRIPARESIS [None]
  - VISION BLURRED [None]
